FAERS Safety Report 24977047 (Version 1)
Quarter: 2025Q1

REPORT INFORMATION
  Report Type: Spontaneous
  Country: JP (occurrence: JP)
  Receive Date: 20250217
  Receipt Date: 20250217
  Transmission Date: 20250408
  Serious: Yes (Death, Hospitalization, Other)
  Sender: TEVA
  Company Number: JP-TEVA-VS-3297162

PATIENT
  Age: 81 Year
  Sex: Female

DRUGS (8)
  1. PREDNISOLONE [Suspect]
     Active Substance: PREDNISOLONE
     Indication: Still^s disease
     Route: 048
  2. PREDNISOLONE [Suspect]
     Active Substance: PREDNISOLONE
     Indication: Still^s disease
     Route: 048
  3. PREDNISOLONE [Suspect]
     Active Substance: PREDNISOLONE
     Indication: Still^s disease
     Route: 048
  4. CEFTAZIDIME [Suspect]
     Active Substance: CEFTAZIDIME
     Indication: Ecthyma
     Route: 065
  5. CLINDAMYCIN [Suspect]
     Active Substance: CLINDAMYCIN
     Indication: Ecthyma
     Route: 065
  6. NOREPINEPHRINE BITARTRATE [Suspect]
     Active Substance: NOREPINEPHRINE BITARTRATE
     Indication: Septic shock
     Route: 065
  7. METHOTREXATE [Suspect]
     Active Substance: METHOTREXATE
     Indication: Still^s disease
     Route: 048
  8. CEFAZOLIN [Suspect]
     Active Substance: CEFAZOLIN
     Indication: Wound infection
     Route: 065

REACTIONS (7)
  - Ecthyma [Fatal]
  - Drug ineffective [Fatal]
  - Septic shock [Fatal]
  - Vasculitis [Unknown]
  - Gangrene [Fatal]
  - Pseudomonas infection [Fatal]
  - Necrosis [Unknown]
